FAERS Safety Report 4361324-X (Version None)
Quarter: 2004Q2

REPORT INFORMATION
  Report Type: 
  Country: None (occurrence: None)
  Receive Date: 20040520
  Receipt Date: 20040517
  Transmission Date: 20050107
  Serious: Yes (Hospitalization, Other)
  Sender: FDA-Public Use
  Company Number: LB-MERCK-0405USA01156

PATIENT
  Age: 72 Year
  Sex: Male

DRUGS (5)
  1. LOVENOX [Concomitant]
     Route: 065
  2. VISTARIL [Concomitant]
     Route: 065
  3. LENITRAL [Concomitant]
     Route: 065
  4. ZOCOR [Suspect]
     Route: 048
  5. TICLID [Concomitant]
     Route: 065

REACTIONS (1)
  - ATRIOVENTRICULAR BLOCK COMPLETE [None]
